FAERS Safety Report 11325768 (Version 2)
Quarter: 2015Q3

REPORT INFORMATION
  Report Type: Spontaneous
  Country: US (occurrence: US)
  Receive Date: 20150731
  Receipt Date: 20150925
  Transmission Date: 20151125
  Serious: Yes (Other)
  Sender: FDA-Public Use
  Company Number: US-009507513-1507USA010973

PATIENT
  Age: 25 Year
  Sex: Female
  Weight: 92.97 kg

DRUGS (1)
  1. NEXPLANON [Suspect]
     Active Substance: ETONOGESTREL
     Indication: CONTRACEPTION
     Dosage: 68 MG/ 1 ROD
     Route: 059
     Dates: start: 20150630, end: 20150713

REACTIONS (8)
  - Tenderness [Recovered/Resolved]
  - Pain in extremity [Recovered/Resolved]
  - Erythema [Recovered/Resolved]
  - Implant site swelling [Recovered/Resolved]
  - Peripheral swelling [Recovered/Resolved]
  - Implant site pain [Recovered/Resolved]
  - Implant site infection [Recovered/Resolved]
  - Implant site erythema [Recovered/Resolved]

NARRATIVE: CASE EVENT DATE: 2015
